FAERS Safety Report 24581338 (Version 1)
Quarter: 2024Q4

REPORT INFORMATION
  Report Type: Spontaneous
  Country: JP (occurrence: JP)
  Receive Date: 20241105
  Receipt Date: 20241105
  Transmission Date: 20250115
  Serious: Yes (Disabling)
  Sender: ELI LILLY AND COMPANY
  Company Number: JP-ELI_LILLY_AND_COMPANY-JP202410022398

PATIENT
  Age: 70 Year
  Sex: Male
  Weight: 57.2 kg

DRUGS (3)
  1. NECITUMUMAB [Suspect]
     Active Substance: NECITUMUMAB
     Indication: Lung squamous cell carcinoma stage IV
     Dosage: 800 MG
     Route: 042
     Dates: start: 20240123, end: 20240228
  2. CISPLATIN [Suspect]
     Active Substance: CISPLATIN
     Indication: Lung squamous cell carcinoma stage IV
     Dosage: UNK
     Route: 042
     Dates: start: 20240123, end: 20240221
  3. GEMCITABINE [Concomitant]
     Active Substance: GEMCITABINE
     Indication: Lung squamous cell carcinoma stage IV
     Dosage: UNK
     Route: 042
     Dates: start: 20240123

REACTIONS (5)
  - Decreased appetite [Recovering/Resolving]
  - Nausea [Recovering/Resolving]
  - Hypomagnesaemia [Recovering/Resolving]
  - Vomiting [Recovering/Resolving]
  - Malignant neoplasm progression [Recovering/Resolving]

NARRATIVE: CASE EVENT DATE: 20240220
